FAERS Safety Report 7804911-6 (Version None)
Quarter: 2011Q4

REPORT INFORMATION
  Report Type: 
  Country: None (occurrence: None)
  Receive Date: 20111010
  Receipt Date: 20111006
  Transmission Date: 20120403
  Serious: Yes (Hospitalization, Other)
  Sender: FDA-Public Use
  Company Number: FR-BRISTOL-MYERS SQUIBB COMPANY-15988249

PATIENT
  Age: 93 Year
  Sex: Female

DRUGS (10)
  1. ASPIRIN [Suspect]
     Indication: TRANSIENT ISCHAEMIC ATTACK
     Dosage: SACHET DOSE 1
     Route: 048
     Dates: start: 20110106
  2. OXAZEPAM [Concomitant]
     Dosage: 1 TAB
     Route: 048
  3. IMOVANE [Concomitant]
     Route: 048
  4. TRAVOPROST AND TIMOLOL [Concomitant]
     Dosage: 1DF=40 MICRO G/5 MG/ML EYE DROPS DAILY
     Route: 047
  5. LASIX [Concomitant]
     Indication: HYPERTENSION
     Dosage: 1 FILM-COATED TABLET
     Route: 048
  6. COUMADIN [Suspect]
     Indication: ATRIAL FIBRILLATION
     Dosage: 1DF=1MG EVERY 2 DAYS ALSO 0.75MG EVERY 2 DAYS 2 MG SCORED TABS
     Route: 048
     Dates: start: 20110106, end: 20110629
  7. TENORMIN [Concomitant]
     Indication: ATRIAL FIBRILLATION
     Dosage: 1 FILM-COATED SCORED TABLET
     Route: 048
     Dates: start: 20110108
  8. DIGOXIN [Concomitant]
     Indication: ATRIAL FIBRILLATION
     Dosage: 1 TABLET
     Route: 048
     Dates: start: 20110106
  9. DAFALGAN CODEINE TABS [Concomitant]
     Dosage: FILM COATED TAB DISCONTINUED
     Route: 048
     Dates: start: 20110621, end: 20110628
  10. AUGMENTIN '125' [Concomitant]
     Indication: URINARY TRACT INFECTION
     Route: 048
     Dates: start: 20110628, end: 20110730

REACTIONS (7)
  - INTERNATIONAL NORMALISED RATIO INCREASED [None]
  - HAEMATOMA [None]
  - JAUNDICE [None]
  - ANAEMIA [None]
  - URINARY TRACT INFECTION [None]
  - ARTHRALGIA [None]
  - CEREBROVASCULAR ACCIDENT [None]
